FAERS Safety Report 8032854-4 (Version None)
Quarter: 2012Q1

REPORT INFORMATION
  Report Type: 
  Country: None (occurrence: None)
  Receive Date: 20120110
  Receipt Date: 20120104
  Transmission Date: 20120608
  Serious: Yes (Other)
  Sender: FDA-Public Use
  Company Number: US-BAYER-2012-001719

PATIENT

DRUGS (1)
  1. ALEVE (CAPLET) [Suspect]
     Dosage: 4 TO 8 A DAY
     Route: 048

REACTIONS (1)
  - HAEMATOCHEZIA [None]
